FAERS Safety Report 18090559 (Version 1)
Quarter: 2020Q3

REPORT INFORMATION
  Report Type: Spontaneous
  Country: US (occurrence: US)
  Receive Date: 20200730
  Receipt Date: 20200730
  Transmission Date: 20201103
  Serious: No
  Sender: FDA-Public Use
  Company Number: US-BRISTOL-MYERS SQUIBB COMPANY-BMS-2020-060841

PATIENT
  Sex: Female
  Weight: 68.12 kg

DRUGS (1)
  1. OPDIVO [Suspect]
     Active Substance: NIVOLUMAB
     Indication: ANAL CANCER
     Dosage: 368 MILLIGRAM, QMO
     Route: 042
     Dates: start: 20171003

REACTIONS (1)
  - Intentional device use issue [Unknown]
